FAERS Safety Report 6039256-0 (Version None)
Quarter: 2009Q1

REPORT INFORMATION
  Report Type: 
  Country: None (occurrence: None)
  Receive Date: 20090115
  Receipt Date: 20090109
  Transmission Date: 20090719
  Serious: Yes (Death)
  Sender: FDA-Public Use
  Company Number: PHHY2009JP01136

PATIENT
  Age: 78 Year
  Sex: Female

DRUGS (1)
  1. NEORAL [Suspect]
     Indication: MYASTHENIA GRAVIS
     Route: 048

REACTIONS (1)
  - DEATH [None]
